FAERS Safety Report 16896751 (Version 2)
Quarter: 2019Q4

REPORT INFORMATION
  Report Type: Spontaneous
  Country: US (occurrence: US)
  Receive Date: 20191008
  Receipt Date: 20191018
  Transmission Date: 20200122
  Serious: No
  Sender: FDA-Public Use
  Company Number: US-009507513-1910USA002501

PATIENT
  Age: 16 Year
  Sex: Female
  Weight: 58.5 kg

DRUGS (1)
  1. NEXPLANON [Suspect]
     Active Substance: ETONOGESTREL
     Indication: CONTRACEPTION
     Dosage: 1 ROD SUBDERMALLY EVERY 3 YEARS (ALSO REPORTED AS DAILY)
     Route: 059
     Dates: start: 20160128

REACTIONS (4)
  - Complication of device removal [Unknown]
  - No adverse event [Unknown]
  - Incorrect product administration duration [Unknown]
  - Device deployment issue [Unknown]

NARRATIVE: CASE EVENT DATE: 20160128
